FAERS Safety Report 6163024-2 (Version None)
Quarter: 2009Q2

REPORT INFORMATION
  Report Type: 
  Country: None (occurrence: None)
  Receive Date: 20090420
  Receipt Date: 20090406
  Transmission Date: 20091009
  Serious: Yes (Other)
  Sender: FDA-Public Use
  Company Number: 2009US001054

PATIENT
  Age: 56 Year
  Sex: Female

DRUGS (6)
  1. LEXISCAN [Suspect]
     Indication: SCAN MYOCARDIAL PERFUSION
     Dosage: 0.4 MG, IV NOS
     Route: 042
     Dates: start: 20090406, end: 20090406
  2. DEPAKOTE [Concomitant]
  3. NEURONTIN [Concomitant]
  4. NAPROXEN SODIUM [Concomitant]
  5. TIMOLOL (TIMOLOL MALEATE) [Concomitant]
  6. TYLENOL WITH CODEIN #3 [Concomitant]

REACTIONS (1)
  - COMPLEX PARTIAL SEIZURES [None]
